FAERS Safety Report 20735178 (Version 1)
Quarter: 2022Q2

REPORT INFORMATION
  Report Type: Spontaneous
  Country: US (occurrence: US)
  Receive Date: 20220421
  Receipt Date: 20220421
  Transmission Date: 20220720
  Serious: No
  Sender: FDA-Public Use
  Company Number: US-PFIZER INC-202200463801

PATIENT
  Age: 85 Year
  Sex: Female

DRUGS (11)
  1. PREGABALIN [Suspect]
     Active Substance: PREGABALIN
     Indication: Neuralgia
     Dosage: UNK, 2X/DAY
     Dates: start: 20220214
  2. PREGABALIN [Suspect]
     Active Substance: PREGABALIN
     Dosage: 100 MG, 4X/DAY
  3. LYRICA [Concomitant]
     Active Substance: PREGABALIN
     Indication: Neuralgia
     Dosage: 100 MG
     Dates: start: 2003, end: 2006
  4. LYRICA [Concomitant]
     Active Substance: PREGABALIN
     Dosage: 100 MG, 2X/DAY
     Dates: start: 20220214
  5. HYDROCHLOROTHIAZIDE [Concomitant]
     Active Substance: HYDROCHLOROTHIAZIDE
     Indication: Bladder disorder
     Dosage: 12.5 MG
  6. LEVOTHYROXINE SODIUM [Concomitant]
     Active Substance: LEVOTHYROXINE SODIUM
     Indication: Thyroid disorder
     Dosage: 125 UG
  7. VITAMIN D3 [Concomitant]
     Active Substance: CHOLECALCIFEROL
     Indication: Supplementation therapy
     Dosage: UNK
  8. FISH OIL [Concomitant]
     Active Substance: FISH OIL
     Indication: Supplementation therapy
     Dosage: UNK
  9. ACETYL L-CARNITINE [ACETYLCARNITINE] [Concomitant]
     Indication: Supplementation therapy
     Dosage: 500 MG, 2X/DAY
  10. ACETYL L-CARNITINE [ACETYLCARNITINE] [Concomitant]
     Dosage: 502 MG
  11. ALPHA LIPOIC ACID [Concomitant]
     Active Substance: .ALPHA.-LIPOIC ACID
     Dosage: 600 MG, 1X/DAY

REACTIONS (2)
  - Drug ineffective [Unknown]
  - Pain in extremity [Recovering/Resolving]
